FAERS Safety Report 22132039 (Version 2)
Quarter: 2023Q2

REPORT INFORMATION
  Report Type: Spontaneous
  Country: NL (occurrence: NL)
  Receive Date: 20230323
  Receipt Date: 20230403
  Transmission Date: 20230722
  Serious: Yes (Hospitalization)
  Sender: FDA-Public Use
  Company Number: NL-TEVA-2023-NL-2868384

PATIENT
  Age: 70 Year
  Sex: Female

DRUGS (6)
  1. METFORMIN [Suspect]
     Active Substance: METFORMIN HYDROCHLORIDE
     Indication: Type 2 diabetes mellitus
     Route: 065
  2. ENALAPRIL [Suspect]
     Active Substance: ENALAPRIL
     Indication: Hypertension
     Route: 065
  3. NAPROXEN [Suspect]
     Active Substance: NAPROXEN
     Indication: Cancer pain
     Route: 065
  4. ALECTINIB [Suspect]
     Active Substance: ALECTINIB
     Indication: Non-small cell lung cancer
     Dosage: 1200 MILLIGRAM DAILY; 600 MG TWICE DAILY
     Route: 065
  5. ALECTINIB [Suspect]
     Active Substance: ALECTINIB
     Dosage: 600 MILLIGRAM DAILY; 300 MG TWICE DAILY
     Route: 065
  6. ALECTINIB [Suspect]
     Active Substance: ALECTINIB
     Dosage: 900 MILLIGRAM DAILY; 450 MG TWICE DAILY
     Route: 065

REACTIONS (9)
  - Acute kidney injury [Recovered/Resolved]
  - Glomerular vascular disorder [Recovered/Resolved]
  - Vasoconstriction [Recovered/Resolved]
  - Hyperglycaemia [Recovered/Resolved]
  - Anaemia [Recovered/Resolved]
  - Thrombocytosis [Recovered/Resolved]
  - Hyponatraemia [Recovered/Resolved]
  - Hyperkalaemia [Recovered/Resolved]
  - Hypercalcaemia [Recovered/Resolved]
